FAERS Safety Report 5326869-4 (Version None)
Quarter: 2007Q2

REPORT INFORMATION
  Report Type: 
  Country: None (occurrence: None)
  Receive Date: 20070511
  Receipt Date: 20070508
  Transmission Date: 20071010
  Serious: Yes (Hospitalization)
  Sender: FDA-Public Use
  Company Number: TPG2007A00352

PATIENT
  Age: 7 Year
  Sex: Female

DRUGS (3)
  1. LEUPROLIDE ACETATE [Suspect]
     Indication: PRECOCIOUS PUBERTY
     Dosage: 3.75 MG (3.75 MG, 1 IN 1 M), SUBCUTANEOUS
     Route: 058
     Dates: start: 20070201
  2. LAMICTAL [Concomitant]
  3. PRIMIDONE [Concomitant]

REACTIONS (10)
  - ABDOMINAL PAIN [None]
  - CHILLS [None]
  - CONVULSION [None]
  - DERMATITIS ALLERGIC [None]
  - DIPLOPIA [None]
  - ERYTHEMA [None]
  - INJECTION SITE ERYTHEMA [None]
  - INJECTION SITE PAIN [None]
  - INJECTION SITE SWELLING [None]
  - PYREXIA [None]
